FAERS Safety Report 6861890-6 (Version None)
Quarter: 2010Q3

REPORT INFORMATION
  Report Type: 
  Country: None (occurrence: None)
  Receive Date: 20100721
  Receipt Date: 20100706
  Transmission Date: 20110219
  Serious: Yes (Other)
  Sender: FDA-Public Use
  Company Number: JP-MYLANLABS-2010S1011995

PATIENT
  Age: 81 Year
  Sex: Female

DRUGS (4)
  1. ASPIRIN [Suspect]
     Indication: ANTIPLATELET THERAPY
     Dosage: 100 MG/DAY
  2. CILOSTAZOL [Suspect]
     Indication: ANTIPLATELET THERAPY
     Dosage: 200 MG/DAY
  3. HEPARIN [Suspect]
     Indication: CARDIAC FAILURE ACUTE
     Dosage: CONTINUOUS INTRAVENOUS INFUSION
     Route: 041
  4. TICLOPIDINE HCL [Suspect]
     Indication: ANGINA PECTORIS
     Route: 065

REACTIONS (4)
  - ANAEMIA [None]
  - MUSCLE HAEMORRHAGE [None]
  - RETROPERITONEAL HAEMATOMA [None]
  - SHOCK [None]
